FAERS Safety Report 5119566-1 (Version None)
Quarter: 2006Q3

REPORT INFORMATION
  Report Type: 
  Country: None (occurrence: None)
  Receive Date: 20060929
  Receipt Date: 20060919
  Transmission Date: 20061208
  Serious: Yes (Disabling, Other)
  Sender: FDA-Public Use
  Company Number: 2006112599

PATIENT
  Age: 25 Year
  Sex: Female
  Weight: 69.4003 kg

DRUGS (2)
  1. SERTRALINE [Suspect]
     Indication: OBSESSIVE-COMPULSIVE DISORDER
     Dosage: 100 MG (100 MG, 1 IN 1 D)
  2. TRICYCLEN (ETHINYLESTRADIOL, NORGESTIMATE) [Concomitant]

REACTIONS (7)
  - DIZZINESS [None]
  - DYSSTASIA [None]
  - HEADACHE [None]
  - NAUSEA [None]
  - PUPILS UNEQUAL [None]
  - THERAPEUTIC RESPONSE UNEXPECTED WITH DRUG SUBSTITUTION [None]
  - VISION BLURRED [None]
